FAERS Safety Report 20161184 (Version 2)
Quarter: 2021Q4

REPORT INFORMATION
  Report Type: Spontaneous
  Country: SI (occurrence: SI)
  Receive Date: 20211208
  Receipt Date: 20211217
  Transmission Date: 20220303
  Serious: Yes (Hospitalization, Other)
  Sender: FDA-Public Use
  Company Number: SI-009507513-2111SVN008165

PATIENT
  Age: 57 Year
  Sex: Male

DRUGS (5)
  1. GEMCITABINE [Suspect]
     Active Substance: GEMCITABINE
     Indication: Product used for unknown indication
     Route: 065
  2. PEMETREXED [Suspect]
     Active Substance: PEMETREXED
     Indication: Lung adenocarcinoma
     Dosage: UNK, CYCLICAL
     Route: 065
     Dates: start: 202104
  3. CARBOPLATIN [Suspect]
     Active Substance: CARBOPLATIN
     Indication: Lung adenocarcinoma
     Dosage: FIRST 4 CYCLES CHEMOTHERAPY
     Route: 065
     Dates: start: 202104
  4. PEMBROLIZUMAB [Suspect]
     Active Substance: PEMBROLIZUMAB
     Indication: Lung adenocarcinoma
     Dosage: 2ND TILL 8TH CYCLE: 200 MG EVERY 3 WEEKS
     Route: 042
     Dates: start: 202104, end: 20210927
  5. PEMBROLIZUMAB [Suspect]
     Active Substance: PEMBROLIZUMAB
     Dosage: 1ST CYCLE: 400 MILLIGRAM, EVERY 6 WEEKS
     Route: 042
     Dates: start: 20210323, end: 202104

REACTIONS (15)
  - Weight decreased [Unknown]
  - Bone pain [Unknown]
  - Wheelchair user [Unknown]
  - Malignant neoplasm progression [Unknown]
  - Malignant neoplasm progression [Unknown]
  - Tumour pseudoprogression [Unknown]
  - Emotional distress [Unknown]
  - Respiratory distress [Unknown]
  - Insomnia [Unknown]
  - Pyrexia [Unknown]
  - Constipation [Unknown]
  - Decreased appetite [Unknown]
  - Adverse drug reaction [Unknown]
  - Nausea [Unknown]
  - Anaemia [Unknown]

NARRATIVE: CASE EVENT DATE: 20210101
